FAERS Safety Report 6298652-7 (Version None)
Quarter: 2009Q3

REPORT INFORMATION
  Report Type: 
  Country: None (occurrence: None)
  Receive Date: 20090804
  Receipt Date: 20090723
  Transmission Date: 20100115
  Serious: Yes (Hospitalization, Other)
  Sender: FDA-Public Use
  Company Number: WAES 0907USA04022

PATIENT
  Age: 62 Year
  Sex: Male
  Weight: 98.4306 kg

DRUGS (11)
  1. PRINIVIL [Suspect]
     Dosage: 20 MG/DAILY/PO
     Route: 048
     Dates: start: 20080427, end: 20090526
  2. LASIX [Suspect]
     Dosage: 40 MG/BID/PO
     Route: 048
     Dates: start: 20080325
  3. FORADIL [Concomitant]
  4. LOPID [Concomitant]
  5. NASONEX [Concomitant]
  6. NIASPAN [Concomitant]
  7. ASPIRIN [Concomitant]
  8. CLOPIDOGREL BISULFATE [Concomitant]
  9. HEPARIN SODIUM [Concomitant]
  10. METOPROLOL [Concomitant]
  11. ROSUVASTATIN CALCIUM [Concomitant]

REACTIONS (9)
  - ASPARTATE AMINOTRANSFERASE INCREASED [None]
  - ATRIAL FIBRILLATION [None]
  - BLOOD CALCIUM DECREASED [None]
  - HAEMATOCRIT DECREASED [None]
  - HAEMOGLOBIN DECREASED [None]
  - PULMONARY MASS [None]
  - RED BLOOD CELL COUNT DECREASED [None]
  - RENAL FAILURE [None]
  - RENAL MASS [None]
